FAERS Safety Report 7180395-9 (Version None)
Quarter: 2010Q4

REPORT INFORMATION
  Report Type: 
  Country: None (occurrence: None)
  Receive Date: 20101221
  Receipt Date: 20101214
  Transmission Date: 20110411
  Serious: Yes (Other)
  Sender: FDA-Public Use
  Company Number: B0682089A

PATIENT
  Sex: Female

DRUGS (10)
  1. LAMICTAL [Suspect]
     Indication: DEPRESSION
     Dosage: 75MG PER DAY
     Route: 048
     Dates: start: 20100908
  2. LAMICTAL [Suspect]
     Dosage: 100MG PER DAY
     Route: 048
     Dates: start: 20101119
  3. DEPAKENE [Concomitant]
     Dosage: 100MG PER DAY
     Route: 048
     Dates: start: 20100928
  4. FLUNITRAZEPAM [Concomitant]
     Dosage: 2MG PER DAY
     Route: 048
  5. BROTIZOLAM [Concomitant]
     Dosage: .25MG PER DAY
     Route: 048
  6. ZYPREXA [Concomitant]
     Dosage: 10MG PER DAY
     Route: 048
  7. CYMBALTA [Concomitant]
     Dosage: 120MG PER DAY
     Route: 048
  8. RISPERIDONE [Concomitant]
     Dosage: 1MG PER DAY
     Route: 048
  9. RISPERIDONE [Concomitant]
     Dosage: 2MG PER DAY
     Route: 048
     Dates: start: 20101007
  10. RISPERIDONE [Concomitant]
     Dosage: 3MG PER DAY
     Route: 048
     Dates: start: 20101117

REACTIONS (3)
  - ANXIETY [None]
  - DELUSION [None]
  - HALLUCINATION [None]
